FAERS Safety Report 9633467 (Version 1)
Quarter: 2013Q4

REPORT INFORMATION
  Report Type: Spontaneous
  Country: US (occurrence: None)
  Receive Date: 20131018
  Receipt Date: 20131018
  Transmission Date: 20140711
  Serious: Yes (Other)
  Sender: FDA-Public Use
  Company Number: None

PATIENT
  Age: 58 Year
  Sex: Female
  Weight: 140 kg

DRUGS (6)
  1. ESCITALOPRAM [Suspect]
     Indication: DEPRESSION
     Route: 048
     Dates: start: 20120825, end: 20131007
  2. ESCITALOPRAM [Suspect]
     Indication: ANXIETY
     Route: 048
     Dates: start: 20120825, end: 20131007
  3. LEXPRO [Concomitant]
  4. ALBUTEROL INHALER [Concomitant]
  5. LAMICTAL [Concomitant]
  6. TYLENOL [Concomitant]

REACTIONS (3)
  - Product substitution issue [None]
  - Drug withdrawal syndrome [None]
  - Depression [None]
